FAERS Safety Report 8894163 (Version 1)
Quarter: 2012Q4

REPORT INFORMATION
  Report Type: 
  Country: US (occurrence: US)
  Receive Date: 20121107
  Receipt Date: 20121107
  Transmission Date: 20130627
  Serious: No
  Sender: FDA-Public Use
  Company Number: US-AMGEN-USASP2011058732

PATIENT
  Age: 54 Year
  Sex: Female

DRUGS (12)
  1. ENBREL [Suspect]
     Indication: PRODUCT USED FOR UNKNOWN INDICATION
     Dosage: 50 mg, qwk
     Dates: end: 20111103
  2. CENTRUM                            /00554501/ [Concomitant]
  3. CALTRATE                           /00751519/ [Concomitant]
  4. METHOTREXATE [Concomitant]
     Dosage: 2.5 mg, UNK
  5. PREDNISONE [Concomitant]
     Dosage: 5 mg, UNK
  6. MUPIROCIN                          /00753902/ [Concomitant]
  7. FOLIC ACID [Concomitant]
     Dosage: 1 mg, UNK
  8. BACTRIM DS [Concomitant]
  9. FISH OIL [Concomitant]
  10. VITAMIN D /00107901/ [Concomitant]
  11. WELCHOL [Concomitant]
     Dosage: 625 mg, UNK
  12. TYLENOL 8 HOUR [Concomitant]
     Dosage: 650 mg, UNK

REACTIONS (3)
  - Cellulitis [Unknown]
  - Infected bites [Unknown]
  - Wound infection staphylococcal [Unknown]
